FAERS Safety Report 22528911 (Version 1)
Quarter: 2023Q2

REPORT INFORMATION
  Report Type: Spontaneous
  Country: CN (occurrence: CN)
  Receive Date: 20230607
  Receipt Date: 20230607
  Transmission Date: 20230722
  Serious: Yes (Other)
  Sender: FDA-Public Use
  Company Number: None

PATIENT
  Age: 49 Year
  Sex: Female
  Weight: 53 kg

DRUGS (7)
  1. CYCLOPHOSPHAMIDE [Suspect]
     Active Substance: CYCLOPHOSPHAMIDE
     Indication: Breast cancer female
     Dosage: 830 MG, QD, DILUTED WITH 40 ML OF SODIUM CHLORIDE, FIRST CHEMOTHERAPY
     Route: 042
     Dates: start: 20230216, end: 20230216
  2. CYCLOPHOSPHAMIDE [Suspect]
     Active Substance: CYCLOPHOSPHAMIDE
     Indication: Chemotherapy
  3. SODIUM CHLORIDE [Suspect]
     Active Substance: SODIUM CHLORIDE
     Indication: Medication dilution
     Dosage: 40 ML, QD, USED TO DILUTE 830 MG CYCLOPHOSPHAMIDE, FIRST CHEMOTHERAPY
     Route: 042
     Dates: start: 20230216, end: 20230216
  4. SODIUM CHLORIDE [Suspect]
     Active Substance: SODIUM CHLORIDE
     Dosage: 100 ML, QD, USED TO DILUTE 120 MG EPIRUBICIN HYDROCHLORIDE, FIRST CHEMOTHERAPY
     Route: 041
     Dates: start: 20230216, end: 20230216
  5. EPIRUBICIN HYDROCHLORIDE [Suspect]
     Active Substance: EPIRUBICIN HYDROCHLORIDE
     Indication: Breast cancer female
     Dosage: 120 MG, QD, DILUTED WITH 100 ML OF SODIUM CHLORIDE, FIRST CHEMOTHERAPY
     Route: 041
     Dates: start: 20230216, end: 20230216
  6. EPIRUBICIN HYDROCHLORIDE [Suspect]
     Active Substance: EPIRUBICIN HYDROCHLORIDE
     Indication: Chemotherapy
  7. Jin you li [Concomitant]
     Dosage: 3 MG
     Route: 058
     Dates: start: 20230217

REACTIONS (2)
  - White blood cell count decreased [Recovered/Resolved]
  - Agranulocytosis [Recovered/Resolved]

NARRATIVE: CASE EVENT DATE: 20230228
